FAERS Safety Report 9217012 (Version 1)
Quarter: 2013Q2

REPORT INFORMATION
  Report Type: Spontaneous
  Country: US (occurrence: None)
  Receive Date: 20130405
  Receipt Date: 20130405
  Transmission Date: 20140414
  Serious: Yes (Other)
  Sender: FDA-Public Use
  Company Number: None

PATIENT
  Age: 70 Year
  Sex: Male
  Weight: 70.31 kg

DRUGS (2)
  1. HYDROCODONE\ACETAMINOPHEN [Suspect]
     Dosage: 1 TAB Q4H PRN PO
     Route: 048
     Dates: start: 20130327, end: 20130403
  2. HYDROCODONE/ACETAMINOPHEN [Suspect]
     Dosage: 1 TAB QH4 PRN PO
     Route: 048
     Dates: start: 20130101, end: 20130326

REACTIONS (4)
  - Nausea [None]
  - Dyspepsia [None]
  - Inadequate analgesia [None]
  - Product substitution issue [None]
